FAERS Safety Report 11905538 (Version 1)
Quarter: 2016Q1

REPORT INFORMATION
  Report Type: Spontaneous
  Country: US (occurrence: US)
  Receive Date: 20160109
  Receipt Date: 20160109
  Transmission Date: 20160526
  Serious: Yes (Hospitalization, Other)
  Sender: FDA-Public Use
  Company Number: US-ZYDUS-009790

PATIENT
  Age: 66 Year
  Sex: Female
  Weight: 54.43 kg

DRUGS (22)
  1. CHONDROITIN/GLUCOSAMINE [Concomitant]
     Indication: PRODUCT USED FOR UNKNOWN INDICATION
     Dosage: TWO GIVEN DAILY
  2. ACETYLSALICYLIC ACID [Concomitant]
     Active Substance: ASPIRIN
     Indication: PRODUCT USED FOR UNKNOWN INDICATION
  3. FISH OIL [Concomitant]
     Active Substance: FISH OIL
     Indication: PRODUCT USED FOR UNKNOWN INDICATION
  4. AMLODIPINE [Concomitant]
     Active Substance: AMLODIPINE BESYLATE
     Indication: PRODUCT USED FOR UNKNOWN INDICATION
  5. FUROSEMIDE. [Suspect]
     Active Substance: FUROSEMIDE
     Indication: FLUID RETENTION
     Route: 048
  6. METHOTREXATE [Concomitant]
     Active Substance: METHOTREXATE
     Indication: PRODUCT USED FOR UNKNOWN INDICATION
     Dosage: FOUR TABLETS GIVEN ONE DAY PER WEEK
  7. METHOTREXATE/METHOTREXATE SODIUM [Concomitant]
     Indication: ARTHRITIS
  8. IRON [Concomitant]
     Active Substance: IRON
     Indication: PRODUCT USED FOR UNKNOWN INDICATION
  9. COLECALCIFEROL [Concomitant]
     Active Substance: CHOLECALCIFEROL
     Indication: PRODUCT USED FOR UNKNOWN INDICATION
  10. LACTOBACILLUS REUTERI [Concomitant]
     Active Substance: LACTOBACILLUS REUTERI
     Indication: PRODUCT USED FOR UNKNOWN INDICATION
  11. SPIRONOLACTONE. [Concomitant]
     Active Substance: SPIRONOLACTONE
     Indication: PRODUCT USED FOR UNKNOWN INDICATION
  12. SALBUTAMOL/SALBUTAMOL SULFATE [Concomitant]
     Indication: PRODUCT USED FOR UNKNOWN INDICATION
  13. PRAMIPEXOLE/PRAMIPEXOLE DIHYDROCHLORIDE [Concomitant]
     Indication: PRODUCT USED FOR UNKNOWN INDICATION
  14. HYDROXYCHLOROQUINE [Suspect]
     Active Substance: HYDROXYCHLOROQUINE
     Indication: OSTEOARTHRITIS
     Route: 048
     Dates: start: 2013
  15. FOLATE SODIUM/FOLIC ACID [Concomitant]
     Indication: PRODUCT USED FOR UNKNOWN INDICATION
  16. CALCIUM CARBONATE/CALCIUM LACTOGLUCONATE [Concomitant]
     Indication: PRODUCT USED FOR UNKNOWN INDICATION
  17. OLMESARTAN [Suspect]
     Active Substance: OLMESARTAN
     Indication: HYPERTENSION
     Dates: start: 20150105
  18. RANITIDINE [Concomitant]
     Active Substance: RANITIDINE\RANITIDINE HYDROCHLORIDE
     Indication: PRODUCT USED FOR UNKNOWN INDICATION
  19. VITAMINS NOS [Concomitant]
     Active Substance: VITAMINS
     Indication: PRODUCT USED FOR UNKNOWN INDICATION
  20. LEVOTHYROXINE. [Concomitant]
     Active Substance: LEVOTHYROXINE
     Indication: PRODUCT USED FOR UNKNOWN INDICATION
  21. SILDENAFIL. [Suspect]
     Active Substance: SILDENAFIL
     Indication: PULMONARY HYPERTENSION
     Dates: start: 2010, end: 20151110
  22. VERAPAMIL/VERAPAMIL HYDROCHLORIDE [Suspect]
     Active Substance: VERAPAMIL HYDROCHLORIDE
     Indication: SUPRAVENTRICULAR TACHYCARDIA

REACTIONS (17)
  - Haematochezia [Not Recovered/Not Resolved]
  - Eye infection [Recovered/Resolved]
  - Pulmonary hypertension [Recovered/Resolved]
  - Blood creatine increased [Recovering/Resolving]
  - Hypokalaemia [Recovered/Resolved]
  - Chronic kidney disease [Recovering/Resolving]
  - Pneumonia [Recovered/Resolved]
  - Cardiac failure congestive [Recovered/Resolved]
  - Anaemia [Not Recovered/Not Resolved]
  - Oedema peripheral [Unknown]
  - Haemoglobin decreased [Not Recovered/Not Resolved]
  - Pain in extremity [Unknown]
  - Hospitalisation [Recovered/Resolved]
  - Respiratory distress [Recovered/Resolved]
  - Gout [Recovered/Resolved]
  - Peripheral swelling [Unknown]
  - Feeling hot [Unknown]

NARRATIVE: CASE EVENT DATE: 20150303
